FAERS Safety Report 9735866 (Version 2)
Quarter: 2015Q3

REPORT INFORMATION
  Report Type: Spontaneous
  Country: US (occurrence: US)
  Receive Date: 20131206
  Receipt Date: 20150804
  Transmission Date: 20151125
  Serious: No
  Sender: FDA-Public Use
  Company Number: US-GILEAD-2009-0024093

PATIENT
  Age: 84 Year
  Sex: Female
  Weight: 65.77 kg

DRUGS (15)
  1. ALLEGRA [Concomitant]
     Active Substance: FEXOFENADINE HYDROCHLORIDE
  2. FISH OIL [Concomitant]
     Active Substance: FISH OIL
  3. ASPIRIN. [Concomitant]
     Active Substance: ASPIRIN
  4. ALBUTEROL. [Concomitant]
     Active Substance: ALBUTEROL
  5. SYNTHROID [Concomitant]
     Active Substance: LEVOTHYROXINE SODIUM
  6. MULTIVITAMIN [Concomitant]
     Active Substance: VITAMINS
  7. CALCIUM 500 + D [Concomitant]
     Active Substance: CALCIUM\VITAMIN D
  8. LETAIRIS [Suspect]
     Active Substance: AMBRISENTAN
     Route: 048
     Dates: start: 20090501
  9. REVATIO [Concomitant]
     Active Substance: SILDENAFIL CITRATE
  10. CRESTOR [Concomitant]
     Active Substance: ROSUVASTATIN CALCIUM
  11. VITAMIN E [Concomitant]
     Active Substance: .ALPHA.-TOCOPHEROL
  12. MAGNESIUM [Concomitant]
     Active Substance: MAGNESIUM
  13. PLAVIX [Concomitant]
     Active Substance: CLOPIDOGREL BISULFATE
  14. DIGOXIN. [Concomitant]
     Active Substance: DIGOXIN
  15. LETAIRIS [Suspect]
     Active Substance: AMBRISENTAN
     Indication: PULMONARY ARTERIAL HYPERTENSION
     Route: 048
     Dates: start: 20090501

REACTIONS (4)
  - Feeling abnormal [Unknown]
  - Decreased appetite [Unknown]
  - Insomnia [Unknown]
  - Nasal congestion [Unknown]
